FAERS Safety Report 8276220-5 (Version None)
Quarter: 2012Q2

REPORT INFORMATION
  Report Type: 
  Country: None (occurrence: None)
  Receive Date: 20120409
  Receipt Date: 20120329
  Transmission Date: 20120825
  Serious: Yes (Hospitalization)
  Sender: FDA-Public Use
  Company Number: ACO_29604_2012

PATIENT
  Age: 67 Year
  Sex: Female

DRUGS (6)
  1. ATACAND [Concomitant]
  2. FAMPRIDINE-SR (FAMPRIDINE) TABLET [Suspect]
     Indication: MULTIPLE SCLEROSIS
     Dosage: 10 MG, BID, ORAL
     Route: 048
     Dates: start: 20070927
  3. CHLORTHALIDONE [Concomitant]
  4. THIAZINE (HYDROCHLOROTHIAZIDE) [Concomitant]
  5. CELEBREX [Concomitant]
  6. NAPROXEN [Concomitant]

REACTIONS (4)
  - EOSINOPHIL COUNT DECREASED [None]
  - BASOPHIL COUNT INCREASED [None]
  - BLOOD CALCIUM DECREASED [None]
  - ENDOMETRIAL CANCER [None]
